FAERS Safety Report 17265293 (Version 2)
Quarter: 2020Q1

REPORT INFORMATION
  Report Type: Spontaneous
  Country: US (occurrence: US)
  Receive Date: 20200114
  Receipt Date: 20200206
  Transmission Date: 20200409
  Serious: Yes (Life-Threatening, Hospitalization, Other)
  Sender: FDA-Public Use
  Company Number: US-LUPIN PHARMACEUTICALS INC.-2020-00056

PATIENT
  Age: 86 Year
  Sex: Female

DRUGS (1)
  1. CLONIDINE. [Suspect]
     Active Substance: CLONIDINE
     Indication: PRODUCT USED FOR UNKNOWN INDICATION
     Dosage: UNK, ACCIDENTALLY USED THE PATIENT^S ANESTHETIC CREAM AS MAYONNAISE WHEN PREPARING THE PATIENT^S SAN
     Route: 065

REACTIONS (9)
  - Loss of consciousness [Recovering/Resolving]
  - Accidental exposure to product [Unknown]
  - Asthenia [Recovering/Resolving]
  - Bradycardia [Recovering/Resolving]
  - Hypertension [Recovering/Resolving]
  - Accidental overdose [Unknown]
  - Toxicity to various agents [Unknown]
  - Mental disorder [Recovering/Resolving]
  - Dizziness [Recovering/Resolving]
